FAERS Safety Report 12569679 (Version 3)
Quarter: 2016Q3

REPORT INFORMATION
  Report Type: Spontaneous
  Country: JP (occurrence: JP)
  Receive Date: 20160719
  Receipt Date: 20160817
  Transmission Date: 20161109
  Serious: Yes (Hospitalization, Other)
  Sender: FDA-Public Use
  Company Number: JP-ELI_LILLY_AND_COMPANY-JP201607003544

PATIENT
  Age: 86 Year
  Sex: Male

DRUGS (8)
  1. AMBROXOL [Concomitant]
     Active Substance: AMBROXOL
  2. MUCODYNE [Concomitant]
     Active Substance: CARBOCYSTEINE
  3. PRAVASTATIN SODIUM. [Concomitant]
     Active Substance: PRAVASTATIN SODIUM
  4. BAYASPIRIN [Concomitant]
     Active Substance: ASPIRIN
  5. ZALUTIA [Suspect]
     Active Substance: TADALAFIL
     Indication: BENIGN PROSTATIC HYPERPLASIA
     Dosage: 2.5 MG, BID
     Route: 048
  6. URIEF [Concomitant]
     Active Substance: SILODOSIN
  7. SPIRIVA [Concomitant]
     Active Substance: TIOTROPIUM BROMIDE MONOHYDRATE
  8. HUSTAZOL                           /00398402/ [Concomitant]

REACTIONS (3)
  - Pneumonia [Unknown]
  - Chronic obstructive pulmonary disease [Unknown]
  - Lung neoplasm malignant [Unknown]

NARRATIVE: CASE EVENT DATE: 20160703
